FAERS Safety Report 4910678-1 (Version None)
Quarter: 2006Q1

REPORT INFORMATION
  Report Type: 
  Country: None (occurrence: None)
  Receive Date: 20060208
  Receipt Date: 20060208
  Transmission Date: 20060701
  Serious: Yes (Hospitalization)
  Sender: FDA-Public Use
  Company Number: None

PATIENT
  Age: 76 Year
  Sex: Male
  Weight: 60.782 kg

DRUGS (16)
  1. HYDROCHLOROTHIAZIDE [Suspect]
     Indication: HYPERTENSION
     Dosage: 25 MG DAILY
     Dates: start: 20050301, end: 20051018
  2. ALBUTEROL [Concomitant]
  3. ALLOPURINOL [Concomitant]
  4. ASCORBIC ACID [Concomitant]
  5. BENZONATATE [Concomitant]
  6. FLUNISOLIDE [Concomitant]
  7. GUAIFENESIN [Concomitant]
  8. IPRATROPIUM BROMIDE [Concomitant]
  9. IRON POLYSACCHARIDE COMPLEX [Concomitant]
  10. KETOCONAZOLE [Concomitant]
  11. LISINOPRIL [Concomitant]
  12. LOVASTATIN [Concomitant]
  13. ADALAT CC [Concomitant]
  14. OMEPRAZOLE [Concomitant]
  15. OXYCODONE HCL [Concomitant]
  16. PSYLLIUM SF [Concomitant]

REACTIONS (3)
  - BLOOD CREATININE INCREASED [None]
  - DEHYDRATION [None]
  - DIZZINESS [None]
